FAERS Safety Report 12243062 (Version 1)
Quarter: 2016Q2

REPORT INFORMATION
  Report Type: Spontaneous
  Country: US (occurrence: US)
  Receive Date: 20160406
  Receipt Date: 20160406
  Transmission Date: 20160815
  Serious: No
  Sender: FDA-Public Use
  Company Number: US-SA-2015SA064196

PATIENT
  Age: 59 Year
  Sex: Female
  Weight: 52 kg

DRUGS (4)
  1. ALLEGRA-D 24 HOUR [Suspect]
     Active Substance: FEXOFENADINE HYDROCHLORIDE\PSEUDOEPHEDRINE HYDROCHLORIDE
     Indication: RHINORRHOEA
     Dosage: DOSE: 180 MG, 240 MG?FREQUENCY: ONLY TAKEN 2 DOSES.
     Route: 048
     Dates: start: 20150506, end: 20150509
  2. SYNTHROID [Concomitant]
     Active Substance: LEVOTHYROXINE SODIUM
     Indication: THYROID DISORDER
     Route: 065
     Dates: start: 1975
  3. ALLEGRA-D 24 HOUR [Suspect]
     Active Substance: FEXOFENADINE HYDROCHLORIDE\PSEUDOEPHEDRINE HYDROCHLORIDE
     Indication: SEASONAL ALLERGY
     Dosage: DOSE: 180 MG, 240 MG?FREQUENCY: ONLY TAKEN 2 DOSES.
     Route: 048
     Dates: start: 20150506, end: 20150509
  4. ALLEGRA-D 24 HOUR [Suspect]
     Active Substance: FEXOFENADINE HYDROCHLORIDE\PSEUDOEPHEDRINE HYDROCHLORIDE
     Indication: MULTIPLE ALLERGIES
     Dosage: DOSE: 180 MG, 240 MG?FREQUENCY: ONLY TAKEN 2 DOSES.
     Route: 048
     Dates: start: 20150506, end: 20150509

REACTIONS (1)
  - Insomnia [Recovered/Resolved]

NARRATIVE: CASE EVENT DATE: 20150506
